FAERS Safety Report 18156732 (Version 1)
Quarter: 2020Q3

REPORT INFORMATION
  Report Type: Spontaneous
  Country: CA (occurrence: CA)
  Receive Date: 20200817
  Receipt Date: 20200817
  Transmission Date: 20201103
  Serious: No
  Sender: FDA-Public Use
  Company Number: None

PATIENT
  Age: 32 Year
  Sex: Female
  Weight: 64.8 kg

DRUGS (4)
  1. CANESTEN COMBI 3 DAY CONFORTAB+ EXTERNAL CREAM [Suspect]
     Active Substance: CLOTRIMAZOLE
     Indication: VULVOVAGINAL MYCOTIC INFECTION
     Dosage: ?          QUANTITY:3 SUPPOSITORY(IES);?
     Route: 067
     Dates: start: 20200815, end: 20200817
  2. IRON SUPPLEMENTS [Concomitant]
     Active Substance: IRON
  3. XANAX [Concomitant]
     Active Substance: ALPRAZOLAM
  4. VITAMIN B12 [Concomitant]
     Active Substance: CYANOCOBALAMIN

REACTIONS (2)
  - Nausea [None]
  - Vomiting [None]

NARRATIVE: CASE EVENT DATE: 20200817
